FAERS Safety Report 8231990-7 (Version None)
Quarter: 2012Q1

REPORT INFORMATION
  Report Type: 
  Country: None (occurrence: None)
  Receive Date: 20120323
  Receipt Date: 20120316
  Transmission Date: 20120608
  Serious: Yes (Life-Threatening, Hospitalization)
  Sender: FDA-Public Use
  Company Number: DE-ROCHE-1018683

PATIENT
  Age: 76 Year
  Sex: Female
  Weight: 74.4 kg

DRUGS (26)
  1. DIGITOXIN INJ [Concomitant]
  2. SPIRONOLACTONE [Concomitant]
     Dates: start: 20101001
  3. DIGITOXIN INJ [Concomitant]
     Dates: start: 20101031
  4. LEVEMIR [Concomitant]
     Dosage: 12/UNIT
     Dates: start: 20101201
  5. XIPAMID [Concomitant]
  6. VEMURAFENIB [Suspect]
     Indication: METASTATIC MALIGNANT MELANOMA
     Dosage: LAST DOSE PRIOR TO SAE:30 NOV 2011
     Route: 048
     Dates: start: 20111122, end: 20111212
  7. ACTRAPID [Concomitant]
     Dosage: 20 IU/ML
     Dates: start: 20101001
  8. CONCOR 5 [Concomitant]
  9. PERINDOPRIL ERBUMINE [Concomitant]
  10. FALITHROM [Concomitant]
  11. ASPIRIN [Concomitant]
     Dates: start: 20101001
  12. PENTAERYTHRITOL TETRANITRATE [Concomitant]
     Dates: start: 20101001
  13. SPIRONOLACTONE [Concomitant]
  14. TORSEMIDE [Concomitant]
  15. EZETIMIBE [Concomitant]
     Dosage: INEGY 10/40
  16. LEVEMIR [Concomitant]
     Dosage: TOTAL DAILY DOSE: 12 UNITS
     Dates: start: 20101201
  17. PENTAERYTHRITOL TETRANITRATE [Concomitant]
  18. TORSEMIDE [Concomitant]
     Dates: start: 20101001
  19. VEMURAFENIB [Suspect]
     Dosage: REDUCED DOSE TO 50 %
     Route: 048
     Dates: start: 20111222, end: 20111224
  20. BISOPROLOL FUMARATE [Concomitant]
     Dates: start: 20111201
  21. ZOLPIDEM [Concomitant]
  22. ACTRAPHANE HM 30/70 [Concomitant]
  23. EZETIMIBE [Concomitant]
     Dosage: 10/20 MG
     Dates: start: 20101031
  24. PANTOPRAZOLE [Concomitant]
     Dates: start: 20111201
  25. RAMIPRIL [Concomitant]
     Dates: start: 20111201
  26. MARCUMAR [Concomitant]
     Dosage: AS NEEDED
     Dates: start: 20101001

REACTIONS (2)
  - GENERAL PHYSICAL HEALTH DETERIORATION [None]
  - PERICARDIAL HAEMORRHAGE [None]
